FAERS Safety Report 7045957-8 (Version None)
Quarter: 2010Q4

REPORT INFORMATION
  Report Type: 
  Country: None (occurrence: None)
  Receive Date: 20101014
  Receipt Date: 20101008
  Transmission Date: 20110411
  Serious: Yes (Other)
  Sender: FDA-Public Use
  Company Number: DE-PFIZER INC-2010121309

PATIENT
  Age: 17 Year
  Sex: Female
  Weight: 72 kg

DRUGS (1)
  1. DEPO-CLINOVIR [Suspect]
     Indication: CONTRACEPTION
     Dosage: 1 DF, EVERY 3 MONTHS
     Route: 030
     Dates: start: 20100210

REACTIONS (3)
  - DRUG INEFFECTIVE [None]
  - UNINTENDED PREGNANCY [None]
  - VAGINAL HAEMORRHAGE [None]
